FAERS Safety Report 9403129 (Version 1)
Quarter: 2013Q3

REPORT INFORMATION
  Report Type: Spontaneous
  Country: FR (occurrence: FR)
  Receive Date: 20130716
  Receipt Date: 20130716
  Transmission Date: 20140515
  Serious: Yes (Hospitalization, Other)
  Sender: FDA-Public Use
  Company Number: FR-ASTRAZENECA-2013SE51297

PATIENT
  Age: 873 Month
  Sex: Male

DRUGS (6)
  1. CRESTOR [Suspect]
     Indication: DYSLIPIDAEMIA
     Route: 048
  2. ENALAPRIL MALEATE [Interacting]
     Indication: MYOCARDIAL INFARCTION
     Route: 048
     Dates: start: 2011
  3. ALLOPURINOL [Interacting]
     Indication: HYPERURICAEMIA
     Route: 048
  4. BISOPROLOL [Concomitant]
  5. INEXIUM [Concomitant]
  6. BICALUTAMIDE [Concomitant]

REACTIONS (2)
  - Drug interaction [Unknown]
  - Neuropathy peripheral [Not Recovered/Not Resolved]
